FAERS Safety Report 12164082 (Version 1)
Quarter: 2016Q1

REPORT INFORMATION
  Report Type: Spontaneous
  Country: BE (occurrence: BE)
  Receive Date: 20160309
  Receipt Date: 20160309
  Transmission Date: 20160526
  Serious: Yes (Other)
  Sender: FDA-Public Use
  Company Number: BE-GLAXOSMITHKLINE-BE2016GSK031442

PATIENT
  Age: 45 Year
  Sex: Female

DRUGS (1)
  1. IMITREX [Suspect]
     Active Substance: SUMATRIPTAN SUCCINATE
     Indication: MIGRAINE

REACTIONS (13)
  - Decreased appetite [Unknown]
  - Abdominal pain [Unknown]
  - Lipase abnormal [Unknown]
  - Splenomegaly [Unknown]
  - Gamma-glutamyltransferase abnormal [Unknown]
  - Blood alkaline phosphatase abnormal [Unknown]
  - Portal vein thrombosis [Unknown]
  - Abdominal symptom [Unknown]
  - Aspartate aminotransferase abnormal [Unknown]
  - Blood bilirubin abnormal [Unknown]
  - Haemoglobin increased [Unknown]
  - Myeloproliferative neoplasm [Unknown]
  - Alanine aminotransferase abnormal [Unknown]
